FAERS Safety Report 15498732 (Version 1)
Quarter: 2018Q4

REPORT INFORMATION
  Report Type: Spontaneous
  Country: US (occurrence: US)
  Receive Date: 20181015
  Receipt Date: 20181015
  Transmission Date: 20190205
  Serious: Yes (Hospitalization)
  Sender: FDA-Public Use
  Company Number: None

PATIENT
  Age: 45 Year
  Sex: Female

DRUGS (1)
  1. BENLYSTA [Suspect]
     Active Substance: BELIMUMAB
     Indication: SYSTEMIC LUPUS ERYTHEMATOSUS
     Dosage: ?          OTHER FREQUENCY:QWK;?
     Route: 058
     Dates: start: 20180729

REACTIONS (2)
  - Hysterectomy [None]
  - Therapy cessation [None]

NARRATIVE: CASE EVENT DATE: 20180918
